FAERS Safety Report 20437746 (Version 1)
Quarter: 2022Q1

REPORT INFORMATION
  Report Type: Spontaneous
  Country: US (occurrence: US)
  Receive Date: 20220207
  Receipt Date: 20220207
  Transmission Date: 20220423
  Serious: Yes (Hospitalization, Other)
  Sender: FDA-Public Use
  Company Number: US-MLMSERVICE-20220120-3327838-1

PATIENT
  Age: 24 Year
  Sex: Female

DRUGS (2)
  1. TRIAMCINOLONE ACETONIDE [Suspect]
     Active Substance: TRIAMCINOLONE ACETONIDE
     Indication: Keloid scar
     Dosage: 0.5 MILLILITER (0.5 AND 0.7 ML OF INTRALESIONAL TRIAMCINOLONE AT 40 MG/ML FOR A TOTAL OF 2 INJECTION
     Route: 026
  2. TRIAMCINOLONE ACETONIDE [Suspect]
     Active Substance: TRIAMCINOLONE ACETONIDE
     Dosage: 0.7 MILLILITER (0.5 AND 0.7 ML OF INTRALESIONAL TRIAMCINOLONE AT 40 MG/ML FOR A TOTAL OF 2 INJECTION
     Route: 026

REACTIONS (8)
  - Hyperaesthesia [Recovered/Resolved]
  - Papule [Recovered/Resolved]
  - Telangiectasia [Recovered/Resolved]
  - Lipoatrophy [Recovered/Resolved]
  - Skin fragility [Recovered/Resolved]
  - Injection site haemorrhage [Recovered/Resolved]
  - Skin atrophy [Recovered/Resolved]
  - Skin hypopigmentation [Recovered/Resolved]
